FAERS Safety Report 9729629 (Version 2)
Quarter: 2014Q1

REPORT INFORMATION
  Report Type: Spontaneous
  Country: GB (occurrence: GB)
  Receive Date: 20131204
  Receipt Date: 20140327
  Transmission Date: 20141002
  Serious: Yes (Other)
  Sender: FDA-Public Use
  Company Number: GB-ASTRAZENECA-2013SE86923

PATIENT
  Age: 19789 Day
  Sex: Male
  Weight: 80.3 kg

DRUGS (5)
  1. AZD2281 [Suspect]
     Indication: GLIOBLASTOMA
     Dosage: 100 MG MONDAY TO FRIDAY
     Route: 048
     Dates: start: 20131001
  2. OMEPRAZOLE [Suspect]
     Indication: GASTRITIS PROPHYLAXIS
     Route: 048
     Dates: start: 20130816
  3. SODIUM VALPROATE [Suspect]
     Indication: CONVULSION
     Route: 048
     Dates: start: 20111111
  4. DEXAMETHASONE [Suspect]
     Indication: SURGERY
     Route: 048
     Dates: start: 20131022
  5. TEMOZOLOMIDE [Suspect]
     Indication: GLIOBLASTOMA
     Dosage: 50 MG/M2, DOSE LEVEL 1
     Route: 048
     Dates: start: 20131007

REACTIONS (1)
  - Atrial tachycardia [Recovered/Resolved]
